FAERS Safety Report 6198440-6 (Version None)
Quarter: 2009Q2

REPORT INFORMATION
  Report Type: 
  Country: None (occurrence: None)
  Receive Date: 20090521
  Receipt Date: 20090515
  Transmission Date: 20091009
  Serious: No
  Sender: FDA-Public Use
  Company Number: US-B.I. PHARMACEUTICALS,INC./RIDGEFIELD-2009-BP-05297BP

PATIENT
  Age: 62 Year
  Sex: Female
  Weight: 102 kg

DRUGS (7)
  1. MIRAPEX [Suspect]
     Indication: RESTLESS LEGS SYNDROME
     Dosage: .5MG
     Route: 048
     Dates: start: 20080301
  2. ABILIFY [Suspect]
  3. LITHIUM [Concomitant]
     Dosage: 600MG
  4. ZOCOR [Concomitant]
     Dosage: 20MG
  5. SINEMET [Concomitant]
  6. LEVOTHYROXINE SODIUM [Concomitant]
     Dosage: 50MCG
  7. PROZAC [Concomitant]
     Dosage: 40MCG

REACTIONS (2)
  - EXTRAPYRAMIDAL DISORDER [None]
  - TREMOR [None]
